FAERS Safety Report 4681574-2 (Version None)
Quarter: 2005Q2

REPORT INFORMATION
  Report Type: 
  Country: None (occurrence: None)
  Receive Date: 20050602
  Receipt Date: 20050518
  Transmission Date: 20051028
  Serious: No
  Sender: FDA-Public Use
  Company Number: USA050597514

PATIENT
  Age: 69 Year
  Sex: Female

DRUGS (1)
  1. PROZAC [Suspect]
     Dosage: 60 MG
     Dates: start: 20000730, end: 20010824

REACTIONS (6)
  - ARTERIAL OCCLUSIVE DISEASE [None]
  - BACK PAIN [None]
  - BONE PAIN [None]
  - CONDITION AGGRAVATED [None]
  - DEPRESSION [None]
  - IRRITABILITY [None]
